FAERS Safety Report 10415227 (Version 5)
Quarter: 2014Q4

REPORT INFORMATION
  Report Type: Report from Study
  Country: US (occurrence: US)
  Receive Date: 20140828
  Receipt Date: 20141204
  Transmission Date: 20150528
  Serious: Yes (Death, Hospitalization, Other)
  Sender: FDA-Public Use
  Company Number: US-BAYER-2014-107224

PATIENT
  Age: 55 Year
  Sex: Female

DRUGS (3)
  1. STIVARGA [Suspect]
     Active Substance: REGORAFENIB
     Indication: COLON CANCER
     Dosage: 160 MG, DAILY
     Route: 048
     Dates: start: 20140618, end: 2014
  2. STIVARGA [Suspect]
     Active Substance: REGORAFENIB
     Indication: COLON CANCER
     Dosage: 160 MG, QD
     Route: 048
     Dates: start: 20140701, end: 20140714
  3. STIVARGA [Suspect]
     Active Substance: REGORAFENIB
     Indication: COLON CANCER
     Dosage: 160 MG, QD
     Route: 048
     Dates: start: 20140721, end: 201410

REACTIONS (18)
  - Back pain [None]
  - Abdominal distension [None]
  - Chills [Not Recovered/Not Resolved]
  - Hypertension [Not Recovered/Not Resolved]
  - Arthralgia [Not Recovered/Not Resolved]
  - Abdominal pain [None]
  - Pyrexia [None]
  - Decreased appetite [None]
  - Myalgia [Not Recovered/Not Resolved]
  - Asthenia [None]
  - Colon cancer [Fatal]
  - Tremor [Recovering/Resolving]
  - Weight decreased [None]
  - Blood pressure increased [None]
  - Blood test abnormal [Not Recovered/Not Resolved]
  - Dysuria [None]
  - Chromaturia [None]
  - Gastrointestinal motility disorder [None]

NARRATIVE: CASE EVENT DATE: 20140701
